FAERS Safety Report 11897315 (Version 52)
Quarter: 2020Q1

REPORT INFORMATION
  Report Type: Report from Study
  Country: CA (occurrence: CA)
  Receive Date: 20160108
  Receipt Date: 20200312
  Transmission Date: 20200409
  Serious: Yes (Other)
  Sender: FDA-Public Use
  Company Number: CA-ROCHE-1691132

PATIENT
  Age: 68 Year
  Sex: Male
  Weight: 87 kg

DRUGS (27)
  1. CORTISONE [Suspect]
     Active Substance: CORTISONE
     Indication: PRODUCT USED FOR UNKNOWN INDICATION
     Route: 048
     Dates: end: 20161130
  2. VOLTAREN [DICLOFENAC DIETHYLAMINE] [Concomitant]
     Active Substance: DICLOFENAC DIETHYLAMINE
  3. HUMIRA [Concomitant]
     Active Substance: ADALIMUMAB
  4. ACTEMRA [Suspect]
     Active Substance: TOCILIZUMAB
     Indication: RHEUMATOID ARTHRITIS
     Route: 042
     Dates: start: 20151217
  5. PREDNISONE. [Suspect]
     Active Substance: PREDNISONE
     Route: 048
  6. CALCITE D [Concomitant]
     Active Substance: CALCIUM CARBONATE
  7. CELEBREX [Concomitant]
     Active Substance: CELECOXIB
     Indication: PAIN
  8. ACTEMRA [Suspect]
     Active Substance: TOCILIZUMAB
     Dosage: ONGOING:YES
     Route: 042
     Dates: start: 20190312
  9. SALAZOPYRIN [Concomitant]
     Active Substance: SULFASALAZINE
  10. PANTOPRAZOLE [Concomitant]
     Active Substance: PANTOPRAZOLE
  11. PREDNISONE. [Suspect]
     Active Substance: PREDNISONE
     Indication: PRODUCT USED FOR UNKNOWN INDICATION
     Route: 065
  12. NOVO-METHACIN [Concomitant]
  13. ALENDRONATE [Concomitant]
     Active Substance: ALENDRONATE SODIUM
  14. ACTEMRA [Suspect]
     Active Substance: TOCILIZUMAB
     Route: 042
     Dates: start: 20161114
  15. FOLIC ACID. [Concomitant]
     Active Substance: FOLIC ACID
  16. PREGABALIN. [Concomitant]
     Active Substance: PREGABALIN
  17. AVAPRO [Concomitant]
     Active Substance: IRBESARTAN
  18. AMLODIPINE [Concomitant]
     Active Substance: AMLODIPINE BESYLATE
  19. ACTEMRA [Suspect]
     Active Substance: TOCILIZUMAB
     Dosage: 16TH INFUSION
     Route: 042
     Dates: start: 20170208
  20. ACTEMRA [Suspect]
     Active Substance: TOCILIZUMAB
     Route: 042
     Dates: start: 20170704
  21. ACTEMRA [Suspect]
     Active Substance: TOCILIZUMAB
     Route: 042
     Dates: start: 20200309
  22. ACTEMRA [Suspect]
     Active Substance: TOCILIZUMAB
     Route: 042
     Dates: start: 20161214
  23. ACTEMRA [Suspect]
     Active Substance: TOCILIZUMAB
     Route: 042
     Dates: start: 20190312
  24. NOVO-PREDNISONE [Concomitant]
     Active Substance: PREDNISONE
  25. ACTEMRA [Suspect]
     Active Substance: TOCILIZUMAB
     Route: 042
     Dates: start: 20180214
  26. METHOTREXATE. [Concomitant]
     Active Substance: METHOTREXATE
  27. SYNTHROID [Concomitant]
     Active Substance: LEVOTHYROXINE SODIUM

REACTIONS (39)
  - Pain [Not Recovered/Not Resolved]
  - Fatigue [Unknown]
  - Blood pressure fluctuation [Unknown]
  - Pain [Recovering/Resolving]
  - Rash [Not Recovered/Not Resolved]
  - Blood pressure increased [Unknown]
  - Heart rate decreased [Unknown]
  - Arthralgia [Not Recovered/Not Resolved]
  - Chest pain [Not Recovered/Not Resolved]
  - Dyspnoea [Unknown]
  - Infusion related reaction [Unknown]
  - Body temperature decreased [Unknown]
  - Swelling [Not Recovered/Not Resolved]
  - Chest pain [Not Recovered/Not Resolved]
  - Arthralgia [Recovering/Resolving]
  - Rheumatoid arthritis [Unknown]
  - Weight decreased [Recovered/Resolved]
  - Chest pain [Unknown]
  - Cataract [Not Recovered/Not Resolved]
  - Immobile [Unknown]
  - Headache [Unknown]
  - Tendonitis [Unknown]
  - Mobility decreased [Unknown]
  - Erythema [Not Recovered/Not Resolved]
  - Pain in extremity [Not Recovered/Not Resolved]
  - Off label use [Unknown]
  - Blood pressure diastolic abnormal [Unknown]
  - Coccydynia [Not Recovered/Not Resolved]
  - Therapeutic response decreased [Not Recovered/Not Resolved]
  - Back pain [Not Recovered/Not Resolved]
  - Herpes zoster [Unknown]
  - Disability assessment scale score increased [Unknown]
  - Oxygen saturation decreased [Unknown]
  - Oxygen saturation decreased [Unknown]
  - Blood pressure systolic increased [Unknown]
  - Arthropathy [Unknown]
  - Arthralgia [Not Recovered/Not Resolved]
  - Intentional product use issue [Unknown]
  - Weight increased [Unknown]

NARRATIVE: CASE EVENT DATE: 2016
